FAERS Safety Report 16998653 (Version 1)
Quarter: 2019Q4

REPORT INFORMATION
  Report Type: Report from Study
  Country: BE (occurrence: BE)
  Receive Date: 20191106
  Receipt Date: 20191106
  Transmission Date: 20200122
  Serious: No
  Sender: FDA-Public Use
  Company Number: BE-BEH-2019108882

PATIENT
  Age: 20 Year
  Sex: Female

DRUGS (4)
  1. BELLOZAL [Concomitant]
     Active Substance: BILASTINE
     Indication: PREMEDICATION
     Dosage: 20 MILLIGRAM
     Route: 048
  2. HIZENTRA [Suspect]
     Active Substance: HUMAN IMMUNOGLOBULIN G
     Indication: HYPOGAMMAGLOBULINAEMIA
     Dosage: 8 GRAM, QW
     Route: 065
     Dates: start: 20190727
  3. HIZENTRA [Suspect]
     Active Substance: HUMAN IMMUNOGLOBULIN G
     Dosage: UNK
     Route: 065
     Dates: start: 20160205, end: 20160205
  4. HIZENTRA [Suspect]
     Active Substance: HUMAN IMMUNOGLOBULIN G
     Dosage: 4 GRAM, QW
     Route: 065
     Dates: start: 201908

REACTIONS (3)
  - Palpitations [Recovered/Resolved]
  - Malaise [Recovered/Resolved]
  - Eye swelling [Recovered/Resolved]

NARRATIVE: CASE EVENT DATE: 20190727
